FAERS Safety Report 17680120 (Version 2)
Quarter: 2020Q2

REPORT INFORMATION
  Report Type: Spontaneous
  Country: NL (occurrence: NL)
  Receive Date: 20200417
  Receipt Date: 20200502
  Transmission Date: 20200714
  Serious: Yes (Hospitalization)
  Sender: FDA-Public Use
  Company Number: NL-TEVA-2020-NL-1224911

PATIENT
  Age: 35 Year
  Sex: Male
  Weight: 92 kg

DRUGS (2)
  1. VENLAFAXINE [Suspect]
     Active Substance: VENLAFAXINE HYDROCHLORIDE
     Indication: DEPRESSION
     Dosage: 150MG, 1D2TABET = 150 MG
     Route: 065
     Dates: start: 200501, end: 20200115
  2. FLUCLOXACILLINE [Concomitant]
     Active Substance: FLUCLOXACILLIN
     Dosage: CAPSULE, 500 MG (MILLIGRAM)THERAPY START DATE: ASKU, THERAPY END DATE: ASKU

REACTIONS (2)
  - Jaundice cholestatic [Recovering/Resolving]
  - Hepatitis [Recovering/Resolving]

NARRATIVE: CASE EVENT DATE: 20191101
